FAERS Safety Report 4698904-8 (Version None)
Quarter: 2005Q2

REPORT INFORMATION
  Report Type: 
  Country: None (occurrence: None)
  Receive Date: 20050624
  Receipt Date: 20050613
  Transmission Date: 20051028
  Serious: Yes (Hospitalization)
  Sender: FDA-Public Use
  Company Number: US-KINGPHARMUSA00001-K200500796

PATIENT
  Age: 83 Year
  Sex: Male

DRUGS (5)
  1. ALTACE [Suspect]
     Indication: HYPERTENSION
     Dosage: 2.5 MG, QD
     Route: 048
     Dates: start: 19930301
  2. LASIX [Suspect]
     Indication: CARDIAC FAILURE CONGESTIVE
     Dosage: 40 MG, QD
     Route: 048
     Dates: start: 19930301
  3. CORDARONE [Suspect]
     Indication: HEART RATE ABNORMAL
     Dosage: 200 MG, QD
     Route: 048
     Dates: start: 19930301, end: 19950516
  4. MELLERIL - SLOW RELEASE ^AWD^ [Suspect]
     Dosage: 40 MG, QD
     Route: 048
     Dates: start: 19930301
  5. TEMAZEPAM [Concomitant]
     Route: 048

REACTIONS (2)
  - CONFUSIONAL STATE [None]
  - HYPERTHYROIDISM [None]
